FAERS Safety Report 9411898 (Version 13)
Quarter: 2014Q1

REPORT INFORMATION
  Report Type: Spontaneous
  Country: US (occurrence: US)
  Receive Date: 20130722
  Receipt Date: 20140128
  Transmission Date: 20141002
  Serious: Yes (Hospitalization, Other)
  Sender: FDA-Public Use
  Company Number: PHEH2003US012260

PATIENT
  Age: 75 Year
  Sex: Female
  Weight: 165 kg

DRUGS (60)
  1. PROCARDIA [Concomitant]
     Dosage: 30 MG, UNK
     Route: 048
  2. CEFTIN [Concomitant]
     Dosage: 250 MG, UNK
     Route: 048
  3. ANZEMET [Concomitant]
     Dosage: 12.5 MG, PRN
  4. ADALAT [Concomitant]
     Dosage: 30 MG, UNK
     Route: 048
  5. ADALAT [Concomitant]
     Dosage: 60 MG, UNK
     Route: 048
  6. PREMARIN                                /NEZ/ [Concomitant]
  7. PROTONIX ^WYETH-AYERST^ [Concomitant]
  8. LIDOCAINE [Concomitant]
     Route: 062
  9. COSOPT [Concomitant]
  10. TRAVATAN [Concomitant]
  11. HYZAAR [Concomitant]
  12. LIPITOR                                 /NET/ [Concomitant]
  13. HYDROCHLOROTHIAZIDE [Concomitant]
  14. ARIMIDEX ^ASTRAZENECA^ [Concomitant]
  15. REVLIMID [Concomitant]
  16. DEXAMETHASONE [Concomitant]
  17. CHLORHEXIDINE [Concomitant]
  18. VITAMINS [Concomitant]
  19. OMEGA [Concomitant]
  20. B12 ^RECIP^ [Concomitant]
  21. B-COM [Concomitant]
  22. VITAMIN D [Concomitant]
  23. TIMOLOL [Concomitant]
  24. CLEOCIN [Concomitant]
  25. AREDIA [Suspect]
     Indication: PLASMA CELL MYELOMA
     Dosage: 90 MG, QMO
     Route: 042
     Dates: start: 1995, end: 2002
  26. ZOMETA [Suspect]
     Indication: PLASMA CELL MYELOMA
     Dosage: 4 MG, QMO
     Route: 042
     Dates: start: 2002, end: 200609
  27. ZOMETA [Suspect]
     Indication: METASTASES TO BONE
     Dosage: UNK UKN, Q3MO
  28. KYTRIL [Concomitant]
  29. ESTROGENS CONJUGATED [Concomitant]
  30. COZAAR [Concomitant]
     Dosage: 50 MG, BID
     Route: 048
  31. PROZAC [Concomitant]
  32. ESOMEPRAZOLE [Concomitant]
  33. VIOXX [Concomitant]
  34. DIAZEPAM [Concomitant]
  35. ALKERAN [Concomitant]
  36. ALLOPURINOL [Concomitant]
  37. PREDNISONE [Concomitant]
  38. CLINDAMYCIN [Concomitant]
  39. LEVAQUIN [Concomitant]
  40. PENICILLIN ^GRUNENTHAL^ [Concomitant]
  41. AROMASIN [Concomitant]
  42. PERIDEX [Concomitant]
  43. CELEXA [Concomitant]
  44. NEURONTIN [Concomitant]
     Dosage: 600 MG, TID
  45. CHEMOTHERAPEUTICS NOS [Concomitant]
  46. ERYTHROMYCIN [Concomitant]
  47. SINEQUAN [Concomitant]
  48. PRILOSEC [Concomitant]
  49. ASPIRIN ^BAYER^ [Concomitant]
  50. NEXIUM [Concomitant]
  51. CYMBALTA [Concomitant]
  52. ARICEPT [Concomitant]
  53. LEVOTHYROXINE [Concomitant]
  54. CARDIZEM [Concomitant]
  55. CLONAZEPAM [Concomitant]
     Route: 048
  56. PEPCID [Concomitant]
     Dosage: 20 MG, BID
     Route: 048
  57. LOVENOX [Concomitant]
     Dosage: 30 MG, Q12H
     Route: 058
  58. ZOFRAN [Concomitant]
     Dosage: 4 MG, Q6H
     Route: 042
  59. VASOTEC [Concomitant]
     Dosage: 1.25 MG, PRN
     Route: 048
  60. RESTORIL [Concomitant]
     Dosage: 15 MG, PRN, HS
     Route: 048

REACTIONS (200)
  - Hip fracture [Unknown]
  - Osteonecrosis of jaw [Not Recovered/Not Resolved]
  - Deformity [Unknown]
  - Hypophagia [Unknown]
  - Anxiety [Unknown]
  - Exposed bone in jaw [Unknown]
  - Abscess jaw [Unknown]
  - Swelling [Not Recovered/Not Resolved]
  - Emotional distress [Unknown]
  - Impaired healing [Unknown]
  - Purulent discharge [Unknown]
  - Gingival bleeding [Unknown]
  - Injury [Not Recovered/Not Resolved]
  - Pain [Unknown]
  - Bladder cancer recurrent [Unknown]
  - Osteomyelitis [Recovering/Resolving]
  - Rectal haemorrhage [Unknown]
  - Large intestine benign neoplasm [Unknown]
  - Diverticulum intestinal [Unknown]
  - Glaucoma [Unknown]
  - Transient ischaemic attack [Unknown]
  - Cataract [Unknown]
  - Femur fracture [Unknown]
  - Spinal column stenosis [Unknown]
  - Spinal osteoarthritis [Unknown]
  - Intervertebral disc degeneration [Unknown]
  - Carpal tunnel syndrome [Unknown]
  - Radiculopathy [Unknown]
  - Haemangioma of bone [Unknown]
  - Mental status changes [Unknown]
  - Poor quality sleep [Unknown]
  - Confusional state [Unknown]
  - Disorientation [Unknown]
  - Blood pressure increased [Unknown]
  - Urosepsis [Unknown]
  - Urinary tract infection [Unknown]
  - Urine odour abnormal [Unknown]
  - Urinary incontinence [Unknown]
  - Pollakiuria [Unknown]
  - Pyrexia [Unknown]
  - Chills [Unknown]
  - Fatigue [Unknown]
  - Malaise [Unknown]
  - Speech disorder [Unknown]
  - Hypercalcaemia [Unknown]
  - Bronchitis [Unknown]
  - Fall [Unknown]
  - Diabetes mellitus [Unknown]
  - Nocturia [Unknown]
  - Uterine cancer [Unknown]
  - Second primary malignancy [Unknown]
  - Angina pectoris [Unknown]
  - Carotid artery stenosis [Unknown]
  - Cardiomegaly [Unknown]
  - Nephrolithiasis [Unknown]
  - Tricuspid valve incompetence [Unknown]
  - Pulmonary hypertension [Unknown]
  - Palpitations [Unknown]
  - Skin papilloma [Unknown]
  - Erosive oesophagitis [Unknown]
  - Sinus congestion [Unknown]
  - Eyelid ptosis [Unknown]
  - Cognitive disorder [Unknown]
  - Amnesia [Unknown]
  - Hyperlipidaemia [Unknown]
  - Hyperparathyroidism [Unknown]
  - Dyspnoea exertional [Unknown]
  - Bursitis [Unknown]
  - Osteopenia [Unknown]
  - Rotator cuff syndrome [Unknown]
  - Hypoacusis [Unknown]
  - Hyperkeratosis [Unknown]
  - Coronary artery disease [Unknown]
  - Aortic arteriosclerosis [Unknown]
  - Onychomycosis [Unknown]
  - Ingrowing nail [Unknown]
  - Alopecia [Unknown]
  - Intraductal proliferative breast lesion [Unknown]
  - Oestrogen receptor positive breast cancer [Unknown]
  - Progesterone receptor assay positive [Unknown]
  - Spondylolisthesis [Unknown]
  - Intervertebral disc protrusion [Unknown]
  - Oedema [Unknown]
  - Haemorrhoids [Unknown]
  - Insomnia [Unknown]
  - Central nervous system lesion [Unknown]
  - Haematochezia [Unknown]
  - Tinnitus [Unknown]
  - Haematuria [Unknown]
  - Myalgia [Unknown]
  - Cough [Unknown]
  - Wheezing [Unknown]
  - Cardiac valve disease [Unknown]
  - Cardiac septal hypertrophy [Unknown]
  - Mitral valve incompetence [Unknown]
  - Aortic valve incompetence [Unknown]
  - Dysponesis [Unknown]
  - Oedema peripheral [Unknown]
  - Hypoaesthesia [Unknown]
  - Mitral valve calcification [Unknown]
  - Left atrial dilatation [Unknown]
  - Atrial fibrillation [Unknown]
  - Pericardial effusion [Recovered/Resolved]
  - Hypoglobulinaemia [Unknown]
  - Rib fracture [Unknown]
  - Pulmonary valve incompetence [Unknown]
  - Coagulopathy [Unknown]
  - Gastrointestinal haemorrhage [Unknown]
  - Aortic stenosis [Unknown]
  - Right ventricular systolic pressure increased [Unknown]
  - Neuropathy peripheral [Unknown]
  - Actinic keratosis [Unknown]
  - Decubitus ulcer [Unknown]
  - Dermatitis [Unknown]
  - Seborrhoeic keratosis [Unknown]
  - Peripheral vascular disorder [Unknown]
  - Carotid bruit [Unknown]
  - Pathological fracture [Unknown]
  - Paraesthesia [Unknown]
  - Arteriovenous malformation [Unknown]
  - Iron deficiency anaemia [Unknown]
  - Oesophageal ulcer [Unknown]
  - Traumatic ulcer [Unknown]
  - Bone lesion [Unknown]
  - Osteosclerosis [Unknown]
  - Osteolysis [Unknown]
  - Metastases to bone [Unknown]
  - Lordosis [Unknown]
  - Palatal disorder [Unknown]
  - Lip pain [Unknown]
  - Glossodynia [Unknown]
  - Groin pain [Unknown]
  - Muscle spasms [Unknown]
  - Renal cyst [Unknown]
  - Cerebral small vessel ischaemic disease [Unknown]
  - Cerebellar infarction [Unknown]
  - Arteriosclerosis [Unknown]
  - Osteoporosis [Unknown]
  - Arrhythmia [Unknown]
  - Gastritis erosive [Unknown]
  - Hypertonic bladder [Unknown]
  - Musculoskeletal chest pain [Unknown]
  - Fibrous histiocytoma [Unknown]
  - Myelodysplastic syndrome [Unknown]
  - Chronic myeloid leukaemia [Unknown]
  - Skin discolouration [Unknown]
  - Pancytopenia [Unknown]
  - Onycholysis [Unknown]
  - Dementia [Unknown]
  - Malnutrition [Unknown]
  - Oral disorder [Unknown]
  - Left ventricular hypertrophy [Unknown]
  - Thyroid disorder [Unknown]
  - Coordination abnormal [Unknown]
  - Urethritis [Unknown]
  - Granuloma [Unknown]
  - Atypical femur fracture [Unknown]
  - Meningioma [Unknown]
  - Hypokalaemia [Unknown]
  - Polyuria [Unknown]
  - Memory impairment [Unknown]
  - Haemorrhage [Unknown]
  - Bone neoplasm [Unknown]
  - Nodule [Unknown]
  - Hepatic lesion [Unknown]
  - Upper respiratory tract infection [Recovered/Resolved]
  - Sciatica [Unknown]
  - Pulmonary mass [Unknown]
  - Lung infiltration [Unknown]
  - Synovial cyst [Unknown]
  - Gingival recession [Unknown]
  - Syncope [Unknown]
  - Lymphoma [Unknown]
  - Ataxia [Unknown]
  - Atelectasis [Unknown]
  - Pulmonary arterial hypertension [Unknown]
  - Delirium [Unknown]
  - Hypoxia [Unknown]
  - Atrioventricular block second degree [Unknown]
  - Osteitis deformans [Unknown]
  - Pharyngeal oedema [Unknown]
  - Osteoarthritis [Unknown]
  - Musculoskeletal pain [Unknown]
  - Arthralgia [Unknown]
  - Joint effusion [Unknown]
  - Intervertebral disc space narrowing [Unknown]
  - Facet joint syndrome [Unknown]
  - Pneumonia [Unknown]
  - Kyphosis [Unknown]
  - Rheumatoid arthritis [Unknown]
  - Cardiac failure congestive [Unknown]
  - Fistula discharge [Unknown]
  - Inflammation [Unknown]
  - Excessive granulation tissue [Unknown]
  - Onychogryphosis [Unknown]
  - Dermatophytosis [Unknown]
  - Symbolic dysfunction [Unknown]
  - Psychogenic pain disorder [Unknown]
  - Wound [Unknown]
  - Restlessness [Unknown]
